FAERS Safety Report 16472758 (Version 1)
Quarter: 2019Q2

REPORT INFORMATION
  Report Type: Spontaneous
  Country: AU (occurrence: AU)
  Receive Date: 20190625
  Receipt Date: 20190625
  Transmission Date: 20190711
  Serious: Yes (Other)
  Sender: FDA-Public Use
  Company Number: AU-009507513-1906AUS007209

PATIENT
  Age: 71 Year
  Sex: Female

DRUGS (3)
  1. PEMETREXED DISODIUM [Suspect]
     Active Substance: PEMETREXED DISODIUM
     Dosage: 3 WEEKLY
     Dates: start: 20161122, end: 201708
  2. KEYTRUDA [Suspect]
     Active Substance: PEMBROLIZUMAB
     Dosage: UNK
     Dates: start: 201808
  3. KEYTRUDA [Suspect]
     Active Substance: PEMBROLIZUMAB
     Dosage: 3 WEEKLY
     Dates: start: 20161122

REACTIONS (3)
  - Joint swelling [Unknown]
  - Lethargy [Unknown]
  - Renal impairment [Unknown]

NARRATIVE: CASE EVENT DATE: 201708
